FAERS Safety Report 23944758 (Version 4)
Quarter: 2024Q3

REPORT INFORMATION
  Report Type: Spontaneous
  Country: US (occurrence: US)
  Receive Date: 20240606
  Receipt Date: 20240718
  Transmission Date: 20241016
  Serious: Yes (Life-Threatening, Hospitalization, Other)
  Sender: UCB
  Company Number: US-UCBSA-2024027375

PATIENT
  Sex: Male

DRUGS (2)
  1. BIMZELX [Suspect]
     Active Substance: BIMEKIZUMAB-BKZX
     Indication: Psoriasis
     Dosage: 320 MILLIGRAM, EV 4 WEEKS (WEEKS 0,4,8,12,16 THEN EVERY 8 WEEKS THEREAFTER)/
     Route: 058
     Dates: start: 20240208
  2. BIMZELX [Suspect]
     Active Substance: BIMEKIZUMAB-BKZX
     Dosage: ONE CARTON SQ
     Route: 058
     Dates: start: 2024, end: 202407

REACTIONS (2)
  - T-cell lymphoma [Not Recovered/Not Resolved]
  - Chemotherapy [Unknown]

NARRATIVE: CASE EVENT DATE: 20240101
